FAERS Safety Report 24985481 (Version 1)
Quarter: 2025Q1

REPORT INFORMATION
  Report Type: Spontaneous
  Country: US (occurrence: None)
  Receive Date: 20250218
  Receipt Date: 20250218
  Transmission Date: 20250408
  Serious: Yes (Hospitalization)
  Sender: FDA-CTU
  Company Number: None

PATIENT
  Sex: Female

DRUGS (3)
  1. TRIKAFTA [Suspect]
     Active Substance: ELEXACAFTOR\IVACAFTOR\TEZACAFTOR
     Indication: Cystic fibrosis
     Route: 048
     Dates: start: 20241112
  2. PARI LC PLUS NEBULIZER [Concomitant]
  3. TOBRAMYCI N [Concomitant]

REACTIONS (4)
  - Infection [None]
  - Abdominal pain upper [None]
  - Loss of personal independence in daily activities [None]
  - Sleep disorder [None]
